FAERS Safety Report 9365997 (Version 11)
Quarter: 2021Q4

REPORT INFORMATION
  Report Type: Spontaneous
  Country: US (occurrence: US)
  Receive Date: 20130625
  Receipt Date: 20211220
  Transmission Date: 20220303
  Serious: No
  Sender: FDA-Public Use
  Company Number: US-PFIZER INC-2013187554

PATIENT
  Age: 48 Year
  Sex: Female

DRUGS (8)
  1. VENLAFAXINE HCL [Suspect]
     Active Substance: VENLAFAXINE HYDROCHLORIDE
     Indication: Panic attack
     Dosage: UNK
     Dates: start: 2012
  2. VENLAFAXINE HCL [Suspect]
     Active Substance: VENLAFAXINE HYDROCHLORIDE
     Indication: Anxiety
     Dosage: 150 MG, 1X/DAY (ONCE DAILY IN THE MORNING)
     Dates: start: 2013, end: 2013
  3. VENLAFAXINE HCL [Suspect]
     Active Substance: VENLAFAXINE HYDROCHLORIDE
     Indication: Major depression
     Dosage: UNK
     Dates: start: 2018, end: 2018
  4. VENLAFAXINE HCL [Suspect]
     Active Substance: VENLAFAXINE HYDROCHLORIDE
     Indication: Panic disorder
  5. KLONOPIN [Suspect]
     Active Substance: CLONAZEPAM
     Indication: Nocturnal dyspnoea
     Dosage: 0.1 MG, AS NEEDED (HALF OF 0.2 MG AS NEEDED AT NIGHT)
  6. KLONOPIN [Suspect]
     Active Substance: CLONAZEPAM
     Indication: Anxiety
  7. IRON [Concomitant]
     Active Substance: IRON
     Indication: Blood iron decreased
     Dosage: UNK
  8. CALCIUM [Concomitant]
     Active Substance: CALCIUM
     Dosage: UNK

REACTIONS (14)
  - Drug ineffective [Recovered/Resolved]
  - Therapeutic response changed [Recovered/Resolved]
  - Dizziness [Recovered/Resolved]
  - Nausea [Recovered/Resolved]
  - Heart rate increased [Recovered/Resolved]
  - Somnolence [Unknown]
  - Fatigue [Unknown]
  - Nocturnal dyspnoea [Unknown]
  - Palpitations [Unknown]
  - Illness [Unknown]
  - Food poisoning [Unknown]
  - Vitamin D decreased [Unknown]
  - Dyspnoea [Unknown]
  - Insomnia [Unknown]

NARRATIVE: CASE EVENT DATE: 20120101
